FAERS Safety Report 16896778 (Version 1)
Quarter: 2019Q4

REPORT INFORMATION
  Report Type: Spontaneous
  Country: US (occurrence: US)
  Receive Date: 20191008
  Receipt Date: 20191008
  Transmission Date: 20200122
  Serious: Yes (Hospitalization, Other)
  Sender: FDA-Public Use
  Company Number: US-BAXTER-2019BAX019568

PATIENT
  Sex: Female

DRUGS (1)
  1. CYCLOPHOSPHAMIDE FOR INJECTION, USP [Suspect]
     Active Substance: CYCLOPHOSPHAMIDE
     Indication: PRODUCT USED FOR UNKNOWN INDICATION
     Route: 065

REACTIONS (12)
  - Escherichia infection [Unknown]
  - Bacterial diarrhoea [Unknown]
  - Fall [Unknown]
  - Migraine [Unknown]
  - Visual impairment [Unknown]
  - Neuropsychological test abnormal [Unknown]
  - Disease progression [Unknown]
  - Metastasis [Unknown]
  - Ligament sprain [Unknown]
  - Vulvovaginal dryness [Unknown]
  - Febrile neutropenia [Unknown]
  - Pain [Unknown]
